FAERS Safety Report 14568226 (Version 1)
Quarter: 2018Q1

REPORT INFORMATION
  Report Type: Spontaneous
  Country: US (occurrence: US)
  Receive Date: 20180223
  Receipt Date: 20180223
  Transmission Date: 20180509
  Serious: No
  Sender: FDA-Public Use
  Company Number: US-IMPAX LABORATORIES, INC-2017-IPXL-01673

PATIENT
  Age: 10 Year
  Sex: Female

DRUGS (4)
  1. EMVERM [Suspect]
     Active Substance: MEBENDAZOLE
     Dosage: 100 MG, UNK
     Route: 048
     Dates: start: 201705
  2. EMVERM [Suspect]
     Active Substance: MEBENDAZOLE
     Dosage: 100 MG, UNK
     Route: 048
     Dates: start: 2017
  3. EMVERM [Suspect]
     Active Substance: MEBENDAZOLE
     Indication: ENTEROBIASIS
     Dosage: 100 MG, UNK
     Route: 048
     Dates: start: 201703
  4. EMVERM [Suspect]
     Active Substance: MEBENDAZOLE
     Dosage: 100 MG, UNK
     Route: 048
     Dates: start: 2017

REACTIONS (1)
  - Treatment failure [Not Recovered/Not Resolved]

NARRATIVE: CASE EVENT DATE: 201703
